FAERS Safety Report 24371483 (Version 1)
Quarter: 2024Q3

REPORT INFORMATION
  Report Type: Spontaneous
  Country: CN (occurrence: CN)
  Receive Date: 20240927
  Receipt Date: 20240927
  Transmission Date: 20241016
  Serious: Yes (Other)
  Sender: PFIZER
  Company Number: CN-PFIZER INC-PV202400124954

PATIENT
  Age: 16 Year
  Sex: Male
  Weight: 93 kg

DRUGS (3)
  1. CYTARABINE [Suspect]
     Active Substance: CYTARABINE
     Indication: Acute leukaemia
     Dosage: 4.2 G, 1X/DAY
     Route: 041
     Dates: start: 20240827, end: 20240828
  2. PEGASPARGASE [Suspect]
     Active Substance: PEGASPARGASE
     Indication: Acute leukaemia
     Dosage: 3750 IU, 1X/DAY
     Route: 030
     Dates: start: 20240829, end: 20240829
  3. SODIUM CHLORIDE [Concomitant]
     Active Substance: SODIUM CHLORIDE
     Indication: Vehicle solution use
     Dosage: 500 ML, 1X/DAY
     Route: 041
     Dates: start: 20240827, end: 20240828

REACTIONS (7)
  - Lipids increased [Recovering/Resolving]
  - High density lipoprotein decreased [Not Recovered/Not Resolved]
  - Alanine aminotransferase increased [Recovering/Resolving]
  - Aspartate aminotransferase increased [Recovered/Resolved]
  - Blood bilirubin increased [Not Recovered/Not Resolved]
  - Bilirubin conjugated increased [Unknown]
  - Blood bilirubin unconjugated increased [Unknown]

NARRATIVE: CASE EVENT DATE: 20240915
